FAERS Safety Report 6209957-X (Version None)
Quarter: 2009Q2

REPORT INFORMATION
  Report Type: 
  Country: None (occurrence: None)
  Receive Date: 20090527
  Receipt Date: 20090514
  Transmission Date: 20091009
  Serious: Yes (Hospitalization)
  Sender: FDA-Public Use
  Company Number: 2009005212

PATIENT
  Age: 49 Year
  Sex: Female

DRUGS (14)
  1. ACTIQ [Suspect]
     Indication: SCIATICA
     Dosage: (200 MCQ), BU; (400 MCG), BU; (500 MCG),BU; (800 MCG), BU
     Route: 002
     Dates: start: 20081101
  2. ACTIQ [Suspect]
     Indication: SCIATICA
     Dosage: (200 MCQ), BU; (400 MCG), BU; (500 MCG),BU; (800 MCG), BU
     Route: 002
     Dates: start: 20081201
  3. ACTIQ [Suspect]
     Indication: SCIATICA
     Dosage: (200 MCQ), BU; (400 MCG), BU; (500 MCG),BU; (800 MCG), BU
     Route: 002
     Dates: start: 20090112
  4. ACTIQ [Suspect]
     Indication: SCIATICA
     Dosage: (200 MCQ), BU; (400 MCG), BU; (500 MCG),BU; (800 MCG), BU
     Route: 002
     Dates: start: 20090112
  5. VENLAFAXINE LP (VENLAFAXINE) [Concomitant]
  6. RIVOTRIL 9CLONAZEPAM) [Concomitant]
  7. MEPRONIZINE (MEPROBAMATE, ACEPROMETAZINE MALEATE) [Concomitant]
  8. BROMAZEPAM (BROMAZEPAM) [Concomitant]
  9. POTASSIUM CHLORIDE [Concomitant]
  10. BUMETANIDE [Concomitant]
  11. FORLAX (MACROGOL) [Concomitant]
  12. TETRAZEPAM (TETRAZEPAM) [Concomitant]
  13. ARTOTEC (DICLOFENAC SODIUM, MISOPROSTOL0 [Concomitant]
  14. DURAGESIC (PARACETAMOL, ORPHENADRINE CITRATE) [Concomitant]

REACTIONS (5)
  - CONFUSIONAL STATE [None]
  - DELIRIUM [None]
  - DYSPNOEA [None]
  - INCOHERENT [None]
  - VERTIGO [None]
